FAERS Safety Report 18958195 (Version 53)
Quarter: 2025Q4

REPORT INFORMATION
  Report Type: Spontaneous
  Country: GB (occurrence: GB)
  Receive Date: 20210302
  Receipt Date: 20251105
  Transmission Date: 20260118
  Serious: Yes (Hospitalization, Other)
  Sender: ORGANON
  Company Number: GB-CUBIST PHARMACEUTICALS, INC.-2013CBST000199

PATIENT
  Age: 71 Year
  Sex: Female
  Weight: 57 kg

DRUGS (243)
  1. SIMVASTATIN [Suspect]
     Active Substance: SIMVASTATIN
     Indication: Infection
     Dosage: UNK
  2. SIMVASTATIN [Suspect]
     Active Substance: SIMVASTATIN
     Indication: Atrial fibrillation
     Dosage: UNK
  3. SIMVASTATIN [Suspect]
     Active Substance: SIMVASTATIN
     Dosage: UNK
  4. SIMVASTATIN [Suspect]
     Active Substance: SIMVASTATIN
     Dosage: UNK
  5. SIMVASTATIN [Suspect]
     Active Substance: SIMVASTATIN
     Dosage: UNK
  6. CUBICIN [Suspect]
     Active Substance: DAPTOMYCIN
     Indication: Arthritis infective
     Dosage: 350 MG,QD, POWDER FOR SOLUTION FOR INFUSION
     Dates: start: 20130306, end: 20130310
  7. CUBICIN [Suspect]
     Active Substance: DAPTOMYCIN
     Indication: Joint injection
     Dosage: 350 MG, QD
     Dates: start: 20130306, end: 20130310
  8. CUBICIN [Suspect]
     Active Substance: DAPTOMYCIN
     Indication: Infection
     Dosage: UNK, POWDER FOR SOLUTION FOR INFUSION
  9. CUBICIN [Suspect]
     Active Substance: DAPTOMYCIN
     Indication: Atrial fibrillation
     Dosage: UNK
  10. CUBICIN [Suspect]
     Active Substance: DAPTOMYCIN
     Indication: Arthritis infective
     Dosage: UNK
  11. CUBICIN [Suspect]
     Active Substance: DAPTOMYCIN
     Dosage: 350 MILLIGRAM, QD
     Dates: start: 20130306
  12. CUBICIN [Suspect]
     Active Substance: DAPTOMYCIN
     Dosage: 350 MG, QD ONCE A DAY, POWDER FOR SOLUTION FOR INFUSION)
     Dates: start: 20130306, end: 20130310
  13. CUBICIN [Suspect]
     Active Substance: DAPTOMYCIN
     Dosage: 350 MILLIGRAM
  14. CUBICIN [Suspect]
     Active Substance: DAPTOMYCIN
     Dosage: 350 MILLIGRAM
  15. CUBICIN [Suspect]
     Active Substance: DAPTOMYCIN
     Dosage: UNK
  16. CUBICIN [Suspect]
     Active Substance: DAPTOMYCIN
     Dosage: UNK
  17. CUBICIN [Suspect]
     Active Substance: DAPTOMYCIN
     Dosage: UNK
  18. CUBICIN [Suspect]
     Active Substance: DAPTOMYCIN
     Dosage: UNK
  19. DAPTOMYCIN [Suspect]
     Active Substance: DAPTOMYCIN
     Indication: Infection
     Dosage: 350 MILLIGRAM, QD (ONCE A DAY)
     Dates: start: 20130306, end: 20130310
  20. DAPTOMYCIN [Suspect]
     Active Substance: DAPTOMYCIN
     Indication: Atrial fibrillation
     Dosage: UNK
  21. DAPTOMYCIN [Suspect]
     Active Substance: DAPTOMYCIN
     Indication: Joint injection
     Dosage: 350MG,QD,POWDER FOR SOLUTION FOR INFUSION
     Dates: start: 20130306, end: 20130310
  22. DAPTOMYCIN [Suspect]
     Active Substance: DAPTOMYCIN
     Indication: Arthritis infective
     Dosage: UNK
  23. DAPTOMYCIN [Suspect]
     Active Substance: DAPTOMYCIN
     Indication: Arthritis infective
     Dosage: 350 MILLIGRAM, QD
  24. DAPTOMYCIN [Suspect]
     Active Substance: DAPTOMYCIN
     Indication: Joint injection
     Dosage: 350 MILLIGRAM
  25. DAPTOMYCIN [Suspect]
     Active Substance: DAPTOMYCIN
     Dosage: 350 MILLIGRAM
  26. DAPTOMYCIN [Suspect]
     Active Substance: DAPTOMYCIN
     Dosage: 350 MILLIGRAM
  27. DAPTOMYCIN [Suspect]
     Active Substance: DAPTOMYCIN
     Dosage: 350 MILLIGRAM
  28. MOMETASONE FUROATE [Concomitant]
     Active Substance: MOMETASONE FUROATE
     Indication: Product used for unknown indication
     Dosage: UNK
     Route: 065
  29. MOMETASONE FUROATE [Concomitant]
     Active Substance: MOMETASONE FUROATE
     Dosage: UNK; ADDITIONAL INFO: ROUTE: 065, PKGID=UNKNOWN
  30. MOMETASONE FUROATE [Concomitant]
     Active Substance: MOMETASONE FUROATE
     Dosage: UNK; ADDITIONAL INFO: ROUTE: 065, PKGID=UNKNOWN
  31. MOMETASONE FUROATE [Concomitant]
     Active Substance: MOMETASONE FUROATE
     Dosage: UNK; ADDITIONAL INFO: ROUTE: 065
     Route: 065
  32. MOMETASONE FUROATE [Concomitant]
     Active Substance: MOMETASONE FUROATE
     Dosage: UNK; ADDITIONAL INFO: ROUTE: 065, PKGID=UNKNOWN
  33. MOMETASONE FUROATE [Concomitant]
     Active Substance: MOMETASONE FUROATE
     Dosage: UNK; ADDITIONAL INFO: ROUTE: 065
     Route: 065
  34. MOMETASONE FUROATE [Concomitant]
     Active Substance: MOMETASONE FUROATE
     Dosage: UNK; ADDITIONAL INFO: ROUTE: 065
     Route: 065
  35. MOMETASONE FUROATE [Concomitant]
     Active Substance: MOMETASONE FUROATE
     Dosage: UNK (OCCLUSIVE)
     Route: 065
  36. MOMETASONE FUROATE [Concomitant]
     Active Substance: MOMETASONE FUROATE
     Dosage: ROUTE OF ADMINISTRATION ALSO REPORTED AS UNKNOWN (ADDITIONAL INFO: ADDITIONAL INFO: ROUTE: 065)
  37. MOMETASONE FUROATE [Concomitant]
     Active Substance: MOMETASONE FUROATE
     Dosage: UNK
     Route: 065
  38. MORPHINE SULFATE [Concomitant]
     Active Substance: MORPHINE SULFATE
     Indication: Product used for unknown indication
     Dosage: UNK; ADDITIONAL INFO: ROUTE: 065
     Route: 065
  39. MORPHINE SULFATE [Concomitant]
     Active Substance: MORPHINE SULFATE
     Indication: Product used for unknown indication
     Dosage: UNK
     Route: 065
  40. MORPHINE SULFATE [Concomitant]
     Active Substance: MORPHINE SULFATE
     Dosage: UNK
     Route: 065
  41. MORPHINE SULFATE [Concomitant]
     Active Substance: MORPHINE SULFATE
     Dosage: UNK
     Route: 065
  42. MORPHINE SULFATE [Concomitant]
     Active Substance: MORPHINE SULFATE
     Dosage: UNK
     Route: 065
  43. MORPHINE SULFATE [Concomitant]
     Active Substance: MORPHINE SULFATE
     Dosage: UNK
     Route: 065
  44. MORPHINE SULFATE [Concomitant]
     Active Substance: MORPHINE SULFATE
     Dosage: UNK
  45. ENOXAPARIN [Concomitant]
     Active Substance: ENOXAPARIN
     Indication: Product used for unknown indication
     Dosage: UNK
     Route: 065
  46. ENOXAPARIN [Concomitant]
     Active Substance: ENOXAPARIN
     Indication: Product used for unknown indication
     Dosage: ROUTE: 065
  47. COCODAMOL [Concomitant]
     Active Substance: ACETAMINOPHEN\CODEINE PHOSPHATE
     Indication: Product used for unknown indication
     Dosage: UNK
     Route: 065
  48. COCODAMOL [Concomitant]
     Active Substance: ACETAMINOPHEN\CODEINE PHOSPHATE
     Dosage: UNK, 30/500 OT
     Route: 065
  49. COCODAMOL [Concomitant]
     Active Substance: ACETAMINOPHEN\CODEINE PHOSPHATE
     Dosage: UNK, 30/500 OT
  50. COCODAMOL [Concomitant]
     Active Substance: ACETAMINOPHEN\CODEINE PHOSPHATE
     Dosage: UNK
  51. ONDANSETRON [Concomitant]
     Active Substance: ONDANSETRON
     Indication: Product used for unknown indication
     Dosage: UNK (ADDITIONAL INFO: ROUTE: 065)
     Route: 065
  52. ONDANSETRON [Concomitant]
     Active Substance: ONDANSETRON
     Indication: Product used for unknown indication
     Dosage: UNK (ADDITIONAL INFO: ROUTE: 065)
     Route: 065
  53. ONDANSETRON [Concomitant]
     Active Substance: ONDANSETRON
     Dosage: UNK (ADDITIONAL INFO: ROUTE: 065)
     Route: 065
  54. ONDANSETRON [Concomitant]
     Active Substance: ONDANSETRON
     Dosage: UNK (ADDITIONAL INFO: ROUTE: 065)
     Route: 065
  55. ONDANSETRON [Concomitant]
     Active Substance: ONDANSETRON
     Dosage: UNK (ADDITIONAL INFO: ROUTE: 065)
     Route: 065
  56. ONDANSETRON [Concomitant]
     Active Substance: ONDANSETRON
     Dosage: UNK (OCCLUSIVE)
     Route: 065
  57. ONDANSETRON [Concomitant]
     Active Substance: ONDANSETRON
     Dosage: UNK (ADDITIONAL INFO: ROUTE: 065)
     Route: 065
  58. ONDANSETRON [Concomitant]
     Active Substance: ONDANSETRON
     Dosage: UNK (ROUTE: 065)
  59. ONDANSETRON [Concomitant]
     Active Substance: ONDANSETRON
     Dosage: UNK
  60. ONDANSETRON [Concomitant]
     Active Substance: ONDANSETRON
     Dosage: UNK
  61. ONDANSETRON [Concomitant]
     Active Substance: ONDANSETRON
     Dosage: UNK
  62. BENDROFLUMETHIAZIDE [Concomitant]
     Active Substance: BENDROFLUMETHIAZIDE
     Indication: Product used for unknown indication
     Dosage: UNK; ADDITIONAL INFO: ROUTE: 065
     Route: 065
  63. BENDROFLUMETHIAZIDE [Concomitant]
     Active Substance: BENDROFLUMETHIAZIDE
     Indication: Product used for unknown indication
     Dosage: UNK; ADDITIONAL INFO: ROUTE: 065
     Route: 065
  64. BENDROFLUMETHIAZIDE [Concomitant]
     Active Substance: BENDROFLUMETHIAZIDE
     Dosage: UNK; ADDITIONAL INFO: ROUTE: 065
     Route: 065
  65. BENDROFLUMETHIAZIDE [Concomitant]
     Active Substance: BENDROFLUMETHIAZIDE
     Dosage: UNK; ADDITIONAL INFO: ROUTE: 065
  66. BENDROFLUMETHIAZIDE [Concomitant]
     Active Substance: BENDROFLUMETHIAZIDE
     Dosage: UNK; ADDITIONAL INFO: ROUTE: 065
     Route: 065
  67. BENDROFLUMETHIAZIDE [Concomitant]
     Active Substance: BENDROFLUMETHIAZIDE
     Dosage: UNK; ADDITIONAL INFO: ROUTE: 065
     Route: 065
  68. BENDROFLUMETHIAZIDE [Concomitant]
     Active Substance: BENDROFLUMETHIAZIDE
     Dosage: UNK (OCCLUSIVE)
     Route: 065
  69. BENDROFLUMETHIAZIDE [Concomitant]
     Active Substance: BENDROFLUMETHIAZIDE
     Dosage: UNK
  70. BENDROFLUMETHIAZIDE [Concomitant]
     Active Substance: BENDROFLUMETHIAZIDE
     Dosage: UNK
  71. BENDROFLUMETHIAZIDE [Concomitant]
     Active Substance: BENDROFLUMETHIAZIDE
     Dosage: (ADDITIONAL INFO: ROUTE: 065)
  72. ASPIRIN [Concomitant]
     Active Substance: ASPIRIN
     Indication: Product used for unknown indication
     Dosage: UNK(ADDITIONAL INFO: ADDITIONAL INFO: ROUTE: 065)
     Route: 065
  73. ASPIRIN [Concomitant]
     Active Substance: ASPIRIN
     Indication: Product used for unknown indication
     Dosage: UNK(ADDITIONAL INFO: ADDITIONAL INFO: ROUTE: 065)
     Route: 065
  74. ASPIRIN [Concomitant]
     Active Substance: ASPIRIN
     Dosage: UNK(ADDITIONAL INFO: ADDITIONAL INFO: ROUTE: 065)
     Route: 065
  75. ASPIRIN [Concomitant]
     Active Substance: ASPIRIN
     Dosage: UNK(ADDITIONAL INFO: ADDITIONAL INFO: ROUTE: 065)
  76. ASPIRIN [Concomitant]
     Active Substance: ASPIRIN
     Dosage: ROUTE: 065
  77. ASPIRIN [Concomitant]
     Active Substance: ASPIRIN
     Dosage: UNK
  78. OMEPRAZOLE [Concomitant]
     Active Substance: OMEPRAZOLE
     Indication: Product used for unknown indication
     Dosage: UNK (ADDITIONAL INFO: ROUTE: 065) (ADDITIONAL INFO: MOMETASONE FUROATE)
     Route: 065
  79. OMEPRAZOLE [Concomitant]
     Active Substance: OMEPRAZOLE
     Indication: Product used for unknown indication
     Dosage: UNK (ADDITIONAL INFO: ROUTE: 065) (ADDITIONAL INFO: MOMETASONE FUROATE)
     Route: 065
  80. OMEPRAZOLE [Concomitant]
     Active Substance: OMEPRAZOLE
     Dosage: UNK (ADDITIONAL INFO: ROUTE: 065) (ADDITIONAL INFO: MOMETASONE FUROATE)
     Route: 065
  81. OMEPRAZOLE [Concomitant]
     Active Substance: OMEPRAZOLE
     Dosage: UNK (ADDITIONAL INFO: ROUTE: 065) (ADDITIONAL INFO: MOMETASONE FUROATE)
     Route: 065
  82. OMEPRAZOLE [Concomitant]
     Active Substance: OMEPRAZOLE
     Dosage: UNK (ADDITIONAL INFO: ROUTE: 065) (ADDITIONAL INFO: MOMETASONE FUROATE)
     Route: 065
  83. OMEPRAZOLE [Concomitant]
     Active Substance: OMEPRAZOLE
     Dosage: UNK (OCCLUSIVE)
     Route: 065
  84. OMEPRAZOLE [Concomitant]
     Active Substance: OMEPRAZOLE
     Dosage: UNK
  85. OMEPRAZOLE [Concomitant]
     Active Substance: OMEPRAZOLE
     Dosage: ROUTE: 065, MOMETASONE FUROATE
  86. RIFAMPIN [Concomitant]
     Active Substance: RIFAMPIN
     Indication: Product used for unknown indication
     Dosage: UNK ADDITIONAL INFO: ADDITIONAL INFO: ROUTE: 065 PKGID=UNKNOWN
     Route: 065
  87. RIFAMPIN [Concomitant]
     Active Substance: RIFAMPIN
     Indication: Product used for unknown indication
     Dosage: UNK (ADDITIONAL INFO: ROUTE: 065)
     Route: 065
  88. RIFAMPIN [Concomitant]
     Active Substance: RIFAMPIN
     Dosage: UNK (ADDITIONAL INFO: ROUTE: 065)
     Route: 065
  89. RIFAMPIN [Concomitant]
     Active Substance: RIFAMPIN
     Dosage: UNK (ADDITIONAL INFO: ROUTE: 065)
     Route: 065
  90. RIFAMPIN [Concomitant]
     Active Substance: RIFAMPIN
     Dosage: UNK (ADDITIONAL INFO: ROUTE: 065)
     Route: 065
  91. RIFAMPIN [Concomitant]
     Active Substance: RIFAMPIN
     Dosage: UNK (ADDITIONAL INFO: ROUTE: 065)
     Route: 065
  92. RIFAMPIN [Concomitant]
     Active Substance: RIFAMPIN
     Dosage: UNK (OCCLUSIVE)
     Route: 065
  93. RIFAMPIN [Concomitant]
     Active Substance: RIFAMPIN
     Dosage: UNK (ADDITIONAL INFO: ADDITIONAL INFO: ROUTE: 065)
     Route: 065
  94. RIFAMPIN [Concomitant]
     Active Substance: RIFAMPIN
     Dosage: UNK
  95. RIFAMPIN [Concomitant]
     Active Substance: RIFAMPIN
     Dosage: ROUTE: 065 PKGID UNKNOWN
  96. RIFAMPIN [Concomitant]
     Active Substance: RIFAMPIN
     Dosage: UNK
  97. RIFAMPIN [Concomitant]
     Active Substance: RIFAMPIN
     Dosage: UNK
  98. RIFAMPIN [Concomitant]
     Active Substance: RIFAMPIN
     Dosage: UNK
  99. RIFAMPIN [Concomitant]
     Active Substance: RIFAMPIN
     Dosage: UNK
  100. RIFAMPIN [Concomitant]
     Active Substance: RIFAMPIN
     Dosage: UNK
  101. RIFAMPIN [Concomitant]
     Active Substance: RIFAMPIN
     Dosage: UNK
  102. ACETAMINOPHEN [Concomitant]
     Active Substance: ACETAMINOPHEN
     Indication: Product used for unknown indication
     Dosage: UNK
     Route: 065
  103. ACETAMINOPHEN [Concomitant]
     Active Substance: ACETAMINOPHEN
     Indication: Product used for unknown indication
     Dosage: 300/50 UNK
     Route: 065
  104. ACETAMINOPHEN [Concomitant]
     Active Substance: ACETAMINOPHEN
     Dosage: UNK
  105. ACETAMINOPHEN [Concomitant]
     Active Substance: ACETAMINOPHEN
     Dosage: 300/50 UNK
  106. POTASSIUM BICARBONATE\POTASSIUM CHLORIDE [Concomitant]
     Active Substance: POTASSIUM BICARBONATE\POTASSIUM CHLORIDE
     Indication: Product used for unknown indication
     Dosage: UNK (ADDITIONAL INFO: ROUTE: 065)
     Route: 065
  107. POTASSIUM BICARBONATE\POTASSIUM CHLORIDE [Concomitant]
     Active Substance: POTASSIUM BICARBONATE\POTASSIUM CHLORIDE
     Dosage: UNK (OCCLUSIVE)
  108. POTASSIUM BICARBONATE\POTASSIUM CHLORIDE [Concomitant]
     Active Substance: POTASSIUM BICARBONATE\POTASSIUM CHLORIDE
     Dosage: UNK (OCCLUSIVE)
  109. POTASSIUM BICARBONATE\POTASSIUM CHLORIDE [Concomitant]
     Active Substance: POTASSIUM BICARBONATE\POTASSIUM CHLORIDE
     Dosage: UNK (OCCLUSIVE)
  110. POTASSIUM BICARBONATE\POTASSIUM CHLORIDE [Concomitant]
     Active Substance: POTASSIUM BICARBONATE\POTASSIUM CHLORIDE
     Dosage: UNK (OCCLUSIVE)
  111. CIPROFLOXACIN [Concomitant]
     Active Substance: CIPROFLOXACIN
     Indication: Product used for unknown indication
     Dosage: UNK (ADDITIONAL INFO: ROUTE: 065)
     Route: 065
  112. CIPROFLOXACIN [Concomitant]
     Active Substance: CIPROFLOXACIN
     Indication: Product used for unknown indication
     Dosage: UNK (ADDITIONAL INFO: ROUTE: 065)
     Route: 065
  113. CIPROFLOXACIN [Concomitant]
     Active Substance: CIPROFLOXACIN
     Dosage: UNK (ADDITIONAL INFO: ROUTE: 065)
     Route: 065
  114. CIPROFLOXACIN [Concomitant]
     Active Substance: CIPROFLOXACIN
     Dosage: UNK (ADDITIONAL INFO: ROUTE: 065)
     Route: 065
  115. CIPROFLOXACIN [Concomitant]
     Active Substance: CIPROFLOXACIN
     Dosage: UNK (ADDITIONAL INFO: ROUTE: 065)
     Route: 065
  116. CIPROFLOXACIN [Concomitant]
     Active Substance: CIPROFLOXACIN
     Dosage: UNK (OCCLUSIVE)
  117. CIPROFLOXACIN [Concomitant]
     Active Substance: CIPROFLOXACIN
     Dosage: UNK (ADDITIONAL INFO: ROUTE: 065)
     Route: 065
  118. CIPROFLOXACIN [Concomitant]
     Active Substance: CIPROFLOXACIN
     Dosage: (ADDITIONAL INFO: ROUTE: 065)
  119. CIPROFLOXACIN [Concomitant]
     Active Substance: CIPROFLOXACIN
     Dosage: UNK
  120. CYCLIZINE [Concomitant]
     Active Substance: CYCLIZINE
     Indication: Product used for unknown indication
     Dosage: DOSE DESCRIPTION : UNK
     Route: 065
  121. CYCLIZINE [Concomitant]
     Active Substance: CYCLIZINE
     Indication: Product used for unknown indication
     Dosage: DOSE DESCRIPTION : UNK
     Route: 065
  122. CYCLIZINE [Concomitant]
     Active Substance: CYCLIZINE
     Dosage: UNK (ADDITIONAL INFO: ROUTE: 065)
     Route: 065
  123. CYCLIZINE [Concomitant]
     Active Substance: CYCLIZINE
     Dosage: UNK (ADDITIONAL INFO: ROUTE: 065)
     Route: 065
  124. CYCLIZINE [Concomitant]
     Active Substance: CYCLIZINE
     Dosage: UNK (ADDITIONAL INFO: ROUTE: 065)
     Route: 065
  125. CYCLIZINE [Concomitant]
     Active Substance: CYCLIZINE
     Dosage: UNK (OCCLUSIVE)
     Route: 065
  126. CYCLIZINE [Concomitant]
     Active Substance: CYCLIZINE
     Dosage: UNK (ADDITIONAL INFO: ROUTE: 065)
  127. CYCLIZINE [Concomitant]
     Active Substance: CYCLIZINE
     Dosage: (ADDITIONAL INFO: ROUTE: 065)
  128. GENTAMICIN [Concomitant]
     Active Substance: GENTAMICIN
     Indication: Product used for unknown indication
     Dosage: UNK (ADDITIONAL INFO: ROUTE: 065)
     Route: 065
  129. GENTAMICIN [Concomitant]
     Active Substance: GENTAMICIN
     Indication: Product used for unknown indication
     Dosage: UNK (OCCLUSIVE)
  130. GENTAMICIN [Concomitant]
     Active Substance: GENTAMICIN
     Dosage: UNK (ADDITIONAL INFO: ROUTE: 065)
  131. GENTAMICIN [Concomitant]
     Active Substance: GENTAMICIN
     Dosage: UNK (ADDITIONAL INFO: ROUTE: 065)
     Route: 065
  132. GENTAMICIN [Concomitant]
     Active Substance: GENTAMICIN
     Dosage: UNK (ADDITIONAL INFO: ROUTE: 065)
     Route: 065
  133. GENTAMICIN [Concomitant]
     Active Substance: GENTAMICIN
     Dosage: UNK (ADDITIONAL INFO: ROUTE: 065)
     Route: 065
  134. GENTAMICIN [Concomitant]
     Active Substance: GENTAMICIN
     Dosage: UNK (ADDITIONAL INFO: ROUTE: 065)
     Route: 065
  135. GENTAMICIN [Concomitant]
     Active Substance: GENTAMICIN
     Dosage: UNK (ADDITIONAL INFO: ROUTE: 065)
     Route: 065
  136. GENTAMICIN [Concomitant]
     Active Substance: GENTAMICIN
     Dosage: (ADDITIONAL INFO: ROUTE: 065)
  137. VANCOMYCIN [Concomitant]
     Active Substance: VANCOMYCIN
     Indication: Infection
     Dosage: UNK; ADDITIONAL INFO: ADDITIONAL INFO: ROUTE: 065
     Route: 065
  138. VANCOMYCIN [Concomitant]
     Active Substance: VANCOMYCIN
     Dosage: UNK; ADDITIONAL INFO: ADDITIONAL INFO: ROUTE: 065
     Route: 065
  139. VANCOMYCIN [Concomitant]
     Active Substance: VANCOMYCIN
     Dosage: UNK; ADDITIONAL INFO: ADDITIONAL INFO: ROUTE: 065
     Route: 065
  140. VANCOMYCIN [Concomitant]
     Active Substance: VANCOMYCIN
     Dosage: UNK; ADDITIONAL INFO: ADDITIONAL INFO: ROUTE: 065
     Route: 065
  141. VANCOMYCIN [Concomitant]
     Active Substance: VANCOMYCIN
     Dosage: UNK; ADDITIONAL INFO: ADDITIONAL INFO: ROUTE: 065
     Route: 065
  142. VANCOMYCIN [Concomitant]
     Active Substance: VANCOMYCIN
     Dosage: UNK; ADDITIONAL INFO: ADDITIONAL INFO: ROUTE: 065
     Route: 065
  143. VANCOMYCIN [Concomitant]
     Active Substance: VANCOMYCIN
     Dosage: UNK (ADDITIONAL INFO: ROUTE: 065)
     Route: 065
  144. VANCOMYCIN [Concomitant]
     Active Substance: VANCOMYCIN
     Dosage: (ADDITIONAL INFO: ROUTE: 065)
  145. CHLORPHENIRAMINE MALEATE [Concomitant]
     Active Substance: CHLORPHENIRAMINE MALEATE
     Indication: Product used for unknown indication
     Dosage: UNK (ADDITIONAL INFO: ROUTE: 065)
     Route: 065
  146. CHLORPHENIRAMINE MALEATE [Concomitant]
     Active Substance: CHLORPHENIRAMINE MALEATE
     Indication: Product used for unknown indication
     Dosage: UNK (ADDITIONAL INFO: ROUTE: 065)
     Route: 065
  147. CHLORPHENIRAMINE MALEATE [Concomitant]
     Active Substance: CHLORPHENIRAMINE MALEATE
     Dosage: UNK (ADDITIONAL INFO: ROUTE: 065)
     Route: 065
  148. CHLORPHENIRAMINE MALEATE [Concomitant]
     Active Substance: CHLORPHENIRAMINE MALEATE
     Dosage: UNK (ADDITIONAL INFO: ROUTE: 065)
     Route: 065
  149. CHLORPHENIRAMINE MALEATE [Concomitant]
     Active Substance: CHLORPHENIRAMINE MALEATE
     Dosage: UNK (ADDITIONAL INFO: ROUTE: 065)
     Route: 065
  150. CHLORPHENIRAMINE MALEATE [Concomitant]
     Active Substance: CHLORPHENIRAMINE MALEATE
     Dosage: UNK (ADDITIONAL INFO: ROUTE: 065)
  151. CHLORPHENIRAMINE MALEATE [Concomitant]
     Active Substance: CHLORPHENIRAMINE MALEATE
     Dosage: ADDITIONAL INFO: ROUTE: 065)
  152. POTASSIUM [Concomitant]
     Active Substance: POTASSIUM
     Indication: Product used for unknown indication
     Dosage: UNK
     Route: 065
  153. POTASSIUM [Concomitant]
     Active Substance: POTASSIUM
     Indication: Product used for unknown indication
     Dosage: UNK
     Route: 065
  154. POTASSIUM [Concomitant]
     Active Substance: POTASSIUM
     Dosage: UNK
     Route: 065
  155. POTASSIUM [Concomitant]
     Active Substance: POTASSIUM
     Dosage: UNK
     Route: 065
  156. POTASSIUM [Concomitant]
     Active Substance: POTASSIUM
     Dosage: UNK
     Route: 065
  157. POTASSIUM [Concomitant]
     Active Substance: POTASSIUM
     Dosage: UNK
     Route: 065
  158. POTASSIUM [Concomitant]
     Active Substance: POTASSIUM
     Dosage: UNK
  159. POTASSIUM [Concomitant]
     Active Substance: POTASSIUM
     Dosage: UNK
  160. POTASSIUM [Concomitant]
     Active Substance: POTASSIUM
     Dosage: UNK
  161. POTASSIUM [Concomitant]
     Active Substance: POTASSIUM
     Dosage: UNK
  162. TRAMADOL [Concomitant]
     Active Substance: TRAMADOL
     Indication: Product used for unknown indication
     Dosage: UNK;  ADDITIONAL INFO: ROUTE: 065
     Route: 065
  163. TRAMADOL [Concomitant]
     Active Substance: TRAMADOL
     Indication: Infection
     Dosage: UNK;  ADDITIONAL INFO: ROUTE: 065
     Route: 065
  164. TRAMADOL [Concomitant]
     Active Substance: TRAMADOL
     Dosage: UNK;  ADDITIONAL INFO: ROUTE: 065
     Route: 065
  165. TRAMADOL [Concomitant]
     Active Substance: TRAMADOL
     Dosage: UNK;  ADDITIONAL INFO: ROUTE: 065
     Route: 065
  166. TRAMADOL [Concomitant]
     Active Substance: TRAMADOL
     Dosage: UNK;  ADDITIONAL INFO: ROUTE: 065
     Route: 065
  167. TRAMADOL [Concomitant]
     Active Substance: TRAMADOL
     Dosage: UNK;  ADDITIONAL INFO: ROUTE: 065
     Route: 065
  168. TRAMADOL [Concomitant]
     Active Substance: TRAMADOL
     Dosage: UNK;  ADDITIONAL INFO: ROUTE: 065
     Route: 065
  169. TRAMADOL [Concomitant]
     Active Substance: TRAMADOL
     Dosage: UNK (OCCLUSIVE)
     Route: 065
  170. TRAMADOL [Concomitant]
     Active Substance: TRAMADOL
     Dosage: ROUTE: 065
  171. TRAMADOL [Concomitant]
     Active Substance: TRAMADOL
     Dosage: UNK
  172. TRAMADOL [Concomitant]
     Active Substance: TRAMADOL
     Dosage: UNK
  173. ENOXAPARIN SODIUM [Concomitant]
     Active Substance: ENOXAPARIN SODIUM
     Indication: Product used for unknown indication
     Dosage: UNK; ADDITIONAL INFO: ROUTE: 065
     Route: 065
  174. ENOXAPARIN SODIUM [Concomitant]
     Active Substance: ENOXAPARIN SODIUM
     Dosage: UNK; ADDITIONAL INFO: ROUTE: 065
     Route: 065
  175. ENOXAPARIN SODIUM [Concomitant]
     Active Substance: ENOXAPARIN SODIUM
     Dosage: UNK; ADDITIONAL INFO: ROUTE: 065
     Route: 065
  176. ENOXAPARIN SODIUM [Concomitant]
     Active Substance: ENOXAPARIN SODIUM
     Dosage: UNK
  177. ENOXAPARIN SODIUM [Concomitant]
     Active Substance: ENOXAPARIN SODIUM
     Dosage: UNK
  178. ASPIRIN [Concomitant]
     Active Substance: ASPIRIN
     Indication: Product used for unknown indication
     Dosage: UNK; ADDITIONAL INFO: ADDITIONAL INFO: ROUTE: 065
     Route: 065
  179. ASPIRIN [Concomitant]
     Active Substance: ASPIRIN
     Dosage: UNK (OCCLUSIVE)
  180. ASPIRIN [Concomitant]
     Active Substance: ASPIRIN
     Dosage: UNK (OCCLUSIVE)
  181. ASPIRIN [Concomitant]
     Active Substance: ASPIRIN
     Dosage: UNK, ADDITIONAL INFO: ADDITIONAL INFO: ROUTE: 065
     Route: 065
  182. ASPIRIN [Concomitant]
     Active Substance: ASPIRIN
     Dosage: UNK;ADDITIONAL INFO: ADDITIONAL INFO: ROUTE: 065
  183. CODEINE PHOSPHATE [Concomitant]
     Active Substance: CODEINE PHOSPHATE
     Indication: Product used for unknown indication
     Dosage: 300/50 UNK
     Route: 065
  184. CODEINE PHOSPHATE [Concomitant]
     Active Substance: CODEINE PHOSPHATE
     Dosage: UNK (300/50 UNK)
  185. CODEINE PHOSPHATE [Concomitant]
     Active Substance: CODEINE PHOSPHATE
     Dosage: UNK (ADDITIONAL INFO: ROUTE: 065)
  186. CODEINE PHOSPHATE [Concomitant]
     Active Substance: CODEINE PHOSPHATE
     Dosage: ROUTE: 065
  187. CODEINE PHOSPHATE [Concomitant]
     Active Substance: CODEINE PHOSPHATE
     Dosage: 300/50 UNK
  188. CODEINE PHOSPHATE [Concomitant]
     Active Substance: CODEINE PHOSPHATE
     Dosage: 300/50 UNK
  189. ACETAMINOPHEN [Concomitant]
     Active Substance: ACETAMINOPHEN
     Indication: Product used for unknown indication
     Dosage: UNK; (ADDITIONAL INFO: ROUTE: 065)
     Route: 065
  190. ACETAMINOPHEN [Concomitant]
     Active Substance: ACETAMINOPHEN
     Indication: Product used for unknown indication
     Dosage: UNK; (ADDITIONAL INFO: ROUTE: 065)
     Route: 065
  191. ACETAMINOPHEN [Concomitant]
     Active Substance: ACETAMINOPHEN
     Dosage: UNK; (ADDITIONAL INFO: ROUTE: 065)
     Route: 065
  192. ACETAMINOPHEN [Concomitant]
     Active Substance: ACETAMINOPHEN
     Dosage: UNK; (ADDITIONAL INFO: ROUTE: 065)
  193. ACETAMINOPHEN [Concomitant]
     Active Substance: ACETAMINOPHEN
     Dosage: UNK; (ADDITIONAL INFO: ROUTE: 065)
  194. ACETAMINOPHEN [Concomitant]
     Active Substance: ACETAMINOPHEN
     Dosage: UNK (OCCLUSIVE)
  195. ACETAMINOPHEN [Concomitant]
     Active Substance: ACETAMINOPHEN
     Dosage: 30/500 UNK (ADDITIONAL INFO: ROUTE: 065)
     Route: 065
  196. ACETAMINOPHEN [Concomitant]
     Active Substance: ACETAMINOPHEN
     Dosage: UNK
  197. ACETAMINOPHEN [Concomitant]
     Active Substance: ACETAMINOPHEN
     Dosage: UNK
  198. ACETAMINOPHEN [Concomitant]
     Active Substance: ACETAMINOPHEN
     Dosage: (ADDITIONAL INFO: ROUTE: 065)
  199. ACETAMINOPHEN [Concomitant]
     Active Substance: ACETAMINOPHEN
     Dosage: UNK
  200. ACETAMINOPHEN [Concomitant]
     Active Substance: ACETAMINOPHEN
     Dosage: UNK
  201. ACETAMINOPHEN [Concomitant]
     Active Substance: ACETAMINOPHEN
     Dosage: UNK
  202. CODEINE [Concomitant]
     Active Substance: CODEINE
     Indication: Product used for unknown indication
     Dosage: 300/50 UNK
  203. CODEINE [Concomitant]
     Active Substance: CODEINE
     Indication: Product used for unknown indication
     Dosage: UNK
  204. CODEINE [Concomitant]
     Active Substance: CODEINE
     Dosage: UNK
  205. CODEINE [Concomitant]
     Active Substance: CODEINE
     Dosage: ROUTE: 065
  206. CODEINE [Concomitant]
     Active Substance: CODEINE
     Dosage: (300/50 UNK)
  207. BENDROFLUMETHIAZIDE [Concomitant]
     Active Substance: BENDROFLUMETHIAZIDE
     Indication: Product used for unknown indication
     Dosage: UNK; ADDITIONAL INFO: ROUTE: 065
     Route: 065
  208. BENDROFLUMETHIAZIDE [Concomitant]
     Active Substance: BENDROFLUMETHIAZIDE
     Indication: Product used for unknown indication
     Dosage: UNK; ADDITIONAL INFO: ROUTE: 065
     Route: 065
  209. BENDROFLUMETHIAZIDE [Concomitant]
     Active Substance: BENDROFLUMETHIAZIDE
     Dosage: UNK; ADDITIONAL INFO: ROUTE: 065
     Route: 065
  210. BENDROFLUMETHIAZIDE [Concomitant]
     Active Substance: BENDROFLUMETHIAZIDE
     Dosage: UNK; ADDITIONAL INFO: ROUTE: 065
  211. BENDROFLUMETHIAZIDE [Concomitant]
     Active Substance: BENDROFLUMETHIAZIDE
     Dosage: UNK; ADDITIONAL INFO: ROUTE: 065
     Route: 065
  212. BENDROFLUMETHIAZIDE [Concomitant]
     Active Substance: BENDROFLUMETHIAZIDE
     Dosage: UNK; ADDITIONAL INFO: ROUTE: 065
     Route: 065
  213. BENDROFLUMETHIAZIDE [Concomitant]
     Active Substance: BENDROFLUMETHIAZIDE
     Dosage: UNK
  214. BENDROFLUMETHIAZIDE [Concomitant]
     Active Substance: BENDROFLUMETHIAZIDE
     Dosage: (ADDITIONAL INFO: ROUTE: 065)
  215. Acetaminophen, pracetamol [Concomitant]
     Dosage: UNK
  216. Acetaminophen, pracetamol [Concomitant]
     Dosage: UNK
  217. MOMETASONE [Concomitant]
     Active Substance: MOMETASONE
     Indication: Product used for unknown indication
     Dosage: UNK ROUTE OF ADMINISTRATION ALSO REPORTED AS UNKNOWN, (ADDITIONAL INFO: ROUTE: 065)
  218. MOMETASONE [Concomitant]
     Active Substance: MOMETASONE
     Indication: Product used for unknown indication
     Dosage: UNK; (ADDITIONAL INFO: ROUTE: 065)
     Route: 065
  219. MOMETASONE [Concomitant]
     Active Substance: MOMETASONE
     Dosage: UNK; (ADDITIONAL INFO: ROUTE: 065)
     Route: 065
  220. MOMETASONE [Concomitant]
     Active Substance: MOMETASONE
     Dosage: UNK
     Route: 065
  221. MOMETASONE [Concomitant]
     Active Substance: MOMETASONE
     Dosage: UNK
  222. MOMETASONE [Concomitant]
     Active Substance: MOMETASONE
     Dosage: UNK
     Route: 065
  223. MOMETASONE [Concomitant]
     Active Substance: MOMETASONE
     Dosage: UNK
     Route: 065
  224. MOMETASONE [Concomitant]
     Active Substance: MOMETASONE
     Dosage: UNK
     Route: 065
  225. MOMETASONE [Concomitant]
     Active Substance: MOMETASONE
     Dosage: UNK
  226. MOMETASONE [Concomitant]
     Active Substance: MOMETASONE
     Dosage: ROUTE: 065
  227. MORPHINE [Concomitant]
     Active Substance: MORPHINE
     Indication: Product used for unknown indication
     Dosage: UNK
  228. MORPHINE [Concomitant]
     Active Substance: MORPHINE
     Indication: Product used for unknown indication
     Dosage: UNK
     Route: 065
  229. MORPHINE [Concomitant]
     Active Substance: MORPHINE
     Dosage: UNK
     Route: 065
  230. MORPHINE [Concomitant]
     Active Substance: MORPHINE
     Dosage: UNK
     Route: 065
  231. ASPIRIN [Concomitant]
     Active Substance: ASPIRIN
     Indication: Product used for unknown indication
     Dosage: UNK
     Route: 065
  232. TRAMADOL HYDROCHLORIDE [Concomitant]
     Active Substance: TRAMADOL HYDROCHLORIDE
     Indication: Product used for unknown indication
     Dosage: UNK
  233. TRAMADOL HYDROCHLORIDE [Concomitant]
     Active Substance: TRAMADOL HYDROCHLORIDE
     Indication: Infection
     Dosage: ADDITIONAL INFO: ROUTE: 065)
  234. TRAMADOL HYDROCHLORIDE [Concomitant]
     Active Substance: TRAMADOL HYDROCHLORIDE
     Dosage: UNK
  235. TRAMADOL HYDROCHLORIDE [Concomitant]
     Active Substance: TRAMADOL HYDROCHLORIDE
     Dosage: UNK
  236. TRAMADOL HYDROCHLORIDE [Concomitant]
     Active Substance: TRAMADOL HYDROCHLORIDE
     Dosage: UNK
  237. TRAMADOL HYDROCHLORIDE [Concomitant]
     Active Substance: TRAMADOL HYDROCHLORIDE
     Dosage: UNK
  238. TRAMADOL HYDROCHLORIDE [Concomitant]
     Active Substance: TRAMADOL HYDROCHLORIDE
     Dosage: UNK
  239. TRAMADOL HYDROCHLORIDE [Concomitant]
     Active Substance: TRAMADOL HYDROCHLORIDE
     Dosage: UNK
  240. ACETAMINOPHEN AND CODEINE [Concomitant]
     Active Substance: ACETAMINOPHEN\CODEINE PHOSPHATE
     Indication: Product used for unknown indication
     Dosage: UNK
  241. ACETAMINOPHEN AND CODEINE [Concomitant]
     Active Substance: ACETAMINOPHEN\CODEINE PHOSPHATE
     Dosage: UNK
  242. CAFFEINE CITRATE [Concomitant]
     Active Substance: CAFFEINE CITRATE
     Indication: Product used for unknown indication
     Dosage: UNK
  243. CAFFEINE CITRATE [Concomitant]
     Active Substance: CAFFEINE CITRATE
     Dosage: UNK

REACTIONS (9)
  - Heart rate irregular [Recovering/Resolving]
  - Atrial fibrillation [Unknown]
  - Off label use [Unknown]
  - Blood creatine phosphokinase increased [Unknown]
  - Infection [Unknown]
  - Product used for unknown indication [Unknown]
  - Tachycardia [Recovering/Resolving]
  - Product use in unapproved indication [Unknown]
  - Disease progression [Unknown]

NARRATIVE: CASE EVENT DATE: 20130306
